FAERS Safety Report 8347468-6 (Version None)
Quarter: 2012Q1

REPORT INFORMATION
  Report Type: 
  Country: None (occurrence: None)
  Receive Date: 20120315
  Receipt Date: 20110506
  Transmission Date: 20120608
  Serious: No
  Sender: FDA-Public Use
  Company Number: PHHY2011US34259

PATIENT
  Age: 37 Year
  Sex: Male

DRUGS (3)
  1. PROZAC [Concomitant]
  2. GILENYA [Suspect]
     Indication: RELAPSING-REMITTING MULTIPLE SCLEROSIS
     Dosage: 0.5 MG, QD, ORAL
     Route: 048
     Dates: start: 20110330, end: 20110423
  3. BACLOFEN [Concomitant]

REACTIONS (5)
  - ABDOMINAL DISCOMFORT [None]
  - ABDOMINAL PAIN [None]
  - BACK PAIN [None]
  - DYSPNOEA [None]
  - ABDOMINAL PAIN UPPER [None]
